FAERS Safety Report 6877021-2 (Version None)
Quarter: 2010Q3

REPORT INFORMATION
  Report Type: 
  Country: None (occurrence: None)
  Receive Date: 20100727
  Receipt Date: 20100727
  Transmission Date: 20110219
  Serious: Yes (Hospitalization)
  Sender: FDA-Public Use
  Company Number: None

PATIENT
  Age: 20 Year
  Sex: Female
  Weight: 58.9676 kg

DRUGS (2)
  1. YASMIN [Suspect]
     Indication: CONTRACEPTION
     Dosage: 1 PILL DAILY PO
     Route: 048
     Dates: start: 20060301, end: 20080301
  2. YASMIN [Suspect]
     Indication: MENSTRUATION IRREGULAR
     Dosage: 1 PILL DAILY PO
     Route: 048
     Dates: start: 20060301, end: 20080301

REACTIONS (4)
  - CHOLECYSTECTOMY [None]
  - CHOLECYSTITIS INFECTIVE [None]
  - CHOLELITHIASIS OBSTRUCTIVE [None]
  - VOMITING [None]
